FAERS Safety Report 19380799 (Version 1)
Quarter: 2021Q2

REPORT INFORMATION
  Report Type: Spontaneous
  Country: US (occurrence: US)
  Receive Date: 20210607
  Receipt Date: 20210607
  Transmission Date: 20210717
  Serious: No
  Sender: FDA-Public Use
  Company Number: US-AUROBINDO-AUR-APL-2021-003854

PATIENT
  Age: 69 Year
  Sex: Male

DRUGS (2)
  1. LIPITOR [Concomitant]
     Active Substance: ATORVASTATIN CALCIUM
     Indication: HYPERLIPIDAEMIA
     Dosage: 10 MILLIGRAM, ONCE A DAY
     Route: 065
  2. VENLAFAXINE HYDROCHLORIDE EXTENDED?RELEASE CAPSULES 37.5MG [Suspect]
     Active Substance: VENLAFAXINE HYDROCHLORIDE
     Indication: BACK PAIN
     Dosage: 3 DOSAGE FORM, ONCE A DAY
     Route: 048

REACTIONS (2)
  - Product use in unapproved indication [Unknown]
  - Arthralgia [Recovered/Resolved]
